FAERS Safety Report 19798896 (Version 2)
Quarter: 2021Q4

REPORT INFORMATION
  Report Type: Spontaneous
  Country: US (occurrence: None)
  Receive Date: 20210907
  Receipt Date: 20211102
  Transmission Date: 20220303
  Serious: Yes (Death)
  Sender: FDA-Public Use
  Company Number: US-ROCHE-2905256

PATIENT
  Age: 73 Year
  Sex: Male

DRUGS (9)
  1. ACTEMRA [Suspect]
     Active Substance: TOCILIZUMAB
     Indication: Giant cell arteritis
     Route: 058
     Dates: start: 20210529, end: 20210628
  2. AMLODIPINE [Concomitant]
     Active Substance: AMLODIPINE BESYLATE
  3. FIASP [Concomitant]
     Active Substance: INSULIN ASPART
  4. FUROSEMIDE [Concomitant]
     Active Substance: FUROSEMIDE
  5. TRESIBA [Concomitant]
     Active Substance: INSULIN DEGLUDEC
  6. HUMALOG [Concomitant]
     Active Substance: INSULIN LISPRO
  7. TAR [Concomitant]
     Active Substance: TAR
  8. PLAVIX [Concomitant]
     Active Substance: CLOPIDOGREL BISULFATE
  9. VICTOZA [Concomitant]
     Active Substance: LIRAGLUTIDE

REACTIONS (1)
  - Death [Fatal]

NARRATIVE: CASE EVENT DATE: 20210628
